FAERS Safety Report 16576806 (Version 2)
Quarter: 2019Q3

REPORT INFORMATION
  Report Type: Spontaneous
  Country: JP (occurrence: JP)
  Receive Date: 20190716
  Receipt Date: 20190723
  Transmission Date: 20191004
  Serious: Yes (Death, Hospitalization)
  Sender: FDA-Public Use
  Company Number: JP-GLAXOSMITHKLINE-JP2019JPN115820

PATIENT
  Age: 86 Year
  Sex: Female

DRUGS (12)
  1. RIVOTRIL [Suspect]
     Active Substance: CLONAZEPAM
     Dosage: UNK, QD (NIGHT)
     Route: 048
  2. QUETIAPINE. [Suspect]
     Active Substance: QUETIAPINE
     Dosage: UNK
     Route: 048
  3. DUROTEP [Suspect]
     Active Substance: FENTANYL
     Dosage: UNK UNK, 1D
     Route: 050
  4. COMTAN [Suspect]
     Active Substance: ENTACAPONE
     Dosage: UNK
     Route: 048
  5. REQUIP [Suspect]
     Active Substance: ROPINIROLE HYDROCHLORIDE
     Indication: PARKINSON^S DISEASE
     Dosage: 2 MG, QD (MORNING)
     Route: 048
  6. MAGMITT [Suspect]
     Active Substance: MAGNESIUM OXIDE
     Dosage: UNK
     Route: 048
  7. SYMPROIC [Suspect]
     Active Substance: NALDEMEDINE
     Dosage: UNK
     Route: 048
     Dates: start: 20190621
  8. AMITIZA [Suspect]
     Active Substance: LUBIPROSTONE
     Dosage: UNK
     Route: 048
  9. MENESIT [Suspect]
     Active Substance: CARBIDOPA\LEVODOPA
     Dosage: UNK
     Route: 048
  10. DUROTEP [Suspect]
     Active Substance: FENTANYL
     Dosage: 2.1 MG, 1D
     Route: 050
     Dates: start: 20190621
  11. PROPIVERINE HYDROCHLORIDE [Suspect]
     Active Substance: PROPIVERINE HYDROCHLORIDE
     Dosage: UNK
     Route: 048
  12. SYMPROIC [Suspect]
     Active Substance: NALDEMEDINE
     Indication: CONSTIPATION
     Dosage: UNK
     Route: 048

REACTIONS (4)
  - Somnolence [Fatal]
  - Dysphagia [Unknown]
  - Constipation [Unknown]
  - Wrong technique in product usage process [Unknown]
